FAERS Safety Report 4342654-4 (Version None)
Quarter: 2004Q2

REPORT INFORMATION
  Report Type: 
  Country: None (occurrence: None)
  Receive Date: 20040416
  Receipt Date: 20040408
  Transmission Date: 20050107
  Serious: Yes (Hospitalization)
  Sender: FDA-Public Use
  Company Number: CIP04000511

PATIENT
  Age: 77 Year
  Sex: Female

DRUGS (7)
  1. BENET (RISEDRONATE SODIUM) TABLET 2.5MG [Suspect]
     Indication: OSTEOPOROSIS
     Dosage: 2.5 MG DAILY, ORAL
     Route: 048
     Dates: start: 20031105, end: 20040213
  2. ELCITONIN (ELCATONIN) INJECTION [Concomitant]
  3. AMLODIPINE BESYLATE [Concomitant]
  4. NITRODERM [Concomitant]
  5. NU-LOTAN (LOSARTAN POTASSIUM) [Concomitant]
  6. NEURONTIN (ORGAN LYSATE, STANDARDIZED) [Concomitant]
  7. MOHRUS (KETOPROFEN) [Concomitant]

REACTIONS (18)
  - ALPHA 2 GLOBULIN INCREASED [None]
  - ALPHA GLOBULIN INCREASED [None]
  - BETA GLOBULIN INCREASED [None]
  - BLOOD ALBUMIN DECREASED [None]
  - BLOOD CHOLINESTERASE DECREASED [None]
  - BLOOD FIBRINOGEN INCREASED [None]
  - BLOOD IRON DECREASED [None]
  - BRAIN NATRIURETIC PEPTIDE INCREASED [None]
  - HAEMATOCRIT DECREASED [None]
  - HAEMOGLOBIN DECREASED [None]
  - INTERSTITIAL LUNG DISEASE [None]
  - LABORATORY TEST ABNORMAL [None]
  - LYMPHOCYTE COUNT DECREASED [None]
  - MONOCYTE COUNT INCREASED [None]
  - PLEURAL EFFUSION [None]
  - PROTEIN TOTAL DECREASED [None]
  - PYREXIA [None]
  - RED BLOOD CELL COUNT DECREASED [None]
